FAERS Safety Report 5027709-3 (Version None)
Quarter: 2006Q2

REPORT INFORMATION
  Report Type: 
  Country: None (occurrence: None)
  Receive Date: 20060614
  Receipt Date: 20060614
  Transmission Date: 20061013
  Serious: Yes (Other)
  Sender: FDA-Public Use
  Company Number: None

PATIENT
  Age: 62 Year
  Sex: Male
  Weight: 96.6162 kg

DRUGS (1)
  1. SIMVASTATIN [Suspect]
     Indication: DYSLIPIDAEMIA
     Dosage: 10MG PO QHS
     Route: 048
     Dates: start: 20060124, end: 20060424

REACTIONS (4)
  - BACK PAIN [None]
  - BUTTOCK PAIN [None]
  - NECK PAIN [None]
  - PAIN IN EXTREMITY [None]
